FAERS Safety Report 9333287 (Version 1)
Quarter: 2013Q2

REPORT INFORMATION
  Report Type: Report from Study
  Country: US (occurrence: US)
  Receive Date: 20130606
  Receipt Date: 20130606
  Transmission Date: 20140414
  Serious: Yes (Hospitalization)
  Sender: FDA-Public Use
  Company Number: US-ABBOTT-13P-163-1097197-00

PATIENT
  Age: 24 Year
  Sex: Female

DRUGS (11)
  1. HUMIRA [Suspect]
     Indication: CROHN^S DISEASE
  2. HUMIRA [Suspect]
     Dates: end: 20130228
  3. HUMIRA [Suspect]
     Dates: start: 20130519
  4. VANCOMYCIN [Suspect]
     Indication: INCISION SITE INFECTION
     Route: 042
     Dates: start: 20130316
  5. LUNESTA [Concomitant]
     Indication: PRODUCT USED FOR UNKNOWN INDICATION
     Dosage: AT NIGHT
  6. TRAZODONE [Concomitant]
     Indication: PRODUCT USED FOR UNKNOWN INDICATION
     Dosage: NIGHTLY
  7. PREVACID [Concomitant]
     Indication: PRODUCT USED FOR UNKNOWN INDICATION
  8. PHENERGAN [Concomitant]
     Indication: PRODUCT USED FOR UNKNOWN INDICATION
  9. ZOFRAN [Concomitant]
     Indication: PRODUCT USED FOR UNKNOWN INDICATION
  10. PERCOCET [Concomitant]
     Indication: PAIN
     Dosage: 10/325 MG AS REQUIRED
  11. XANAX [Concomitant]
     Indication: PRODUCT USED FOR UNKNOWN INDICATION
     Dosage: ONCE EVERY 6 HOURS AS REQUIRED

REACTIONS (16)
  - Female genital tract fistula [Recovered/Resolved]
  - Malaise [Recovered/Resolved]
  - Faecal incontinence [Recovered/Resolved]
  - Dehydration [Recovered/Resolved]
  - Incision site infection [Not Recovered/Not Resolved]
  - Staphylococcal abscess [Not Recovered/Not Resolved]
  - Enterocutaneous fistula [Not Recovered/Not Resolved]
  - Wound infection fungal [Not Recovered/Not Resolved]
  - Pyrexia [Not Recovered/Not Resolved]
  - Nausea [Not Recovered/Not Resolved]
  - Hospitalisation [Unknown]
  - Abdominal hernia [Unknown]
  - Dermatitis contact [Unknown]
  - Skin disorder [Unknown]
  - Toxicity to various agents [Unknown]
  - Impaired healing [Not Recovered/Not Resolved]
